FAERS Safety Report 7277934-6 (Version None)
Quarter: 2011Q1

REPORT INFORMATION
  Report Type: 
  Country: None (occurrence: None)
  Receive Date: 20110207
  Receipt Date: 20110127
  Transmission Date: 20110831
  Serious: Yes (Hospitalization)
  Sender: FDA-Public Use
  Company Number: DE-ROCHE-753338

PATIENT
  Sex: Female
  Weight: 70 kg

DRUGS (2)
  1. CAPECITABINE [Suspect]
     Indication: RECTAL CANCER
     Dosage: 825 MG/ME2 TWICE A DAY, FROM DAY 01 TO DAY 33, WITHOUT WEEKEND AND OPTIONAL BOOST.
     Route: 048
     Dates: start: 20101216, end: 20110112
  2. LEVOTHYROXINE SODIUM [Concomitant]
     Indication: HYPOTHYROIDISM
     Dosage: ONCE IN MORNING
     Route: 048
     Dates: start: 20101216

REACTIONS (5)
  - BLOOD UREA INCREASED [None]
  - DIARRHOEA [None]
  - BLOOD CREATININE INCREASED [None]
  - DEHYDRATION [None]
  - BLOOD URIC ACID INCREASED [None]
